FAERS Safety Report 7967217-0 (Version None)
Quarter: 2011Q4

REPORT INFORMATION
  Report Type: 
  Country: None (occurrence: None)
  Receive Date: 20111208
  Receipt Date: 20111208
  Transmission Date: 20120403
  Serious: Yes (Hospitalization)
  Sender: FDA-Public Use
  Company Number: None

PATIENT
  Sex: Male
  Weight: 86.4 kg

DRUGS (2)
  1. CETUXIMAB [Suspect]
     Indication: NON-SMALL CELL LUNG CANCER
     Dosage: 250MG/M2 Q WEEKLY IV
     Route: 042
     Dates: start: 20111109, end: 20111123
  2. ERLOTINIB HYDROCHLORIDE [Suspect]
     Indication: NON-SMALL CELL LUNG CANCER
     Dosage: 150MG QD PO
     Route: 048
     Dates: start: 20111109, end: 20111202

REACTIONS (10)
  - CONFUSIONAL STATE [None]
  - CONSTIPATION [None]
  - PARANEOPLASTIC SYNDROME [None]
  - FATIGUE [None]
  - HYPERCALCAEMIA [None]
  - ASTHENIA [None]
  - ABDOMINAL PAIN [None]
  - REFUSAL OF TREATMENT BY PATIENT [None]
  - ABDOMINAL DISTENSION [None]
  - MENTAL IMPAIRMENT [None]
